FAERS Safety Report 19998734 (Version 7)
Quarter: 2022Q3

REPORT INFORMATION
  Report Type: Spontaneous
  Country: US (occurrence: US)
  Receive Date: 20211026
  Receipt Date: 20220907
  Transmission Date: 20221026
  Serious: No
  Sender: FDA-Public Use
  Company Number: US-PFIZER INC-202101275720

PATIENT
  Age: 48 Year
  Sex: Female

DRUGS (2)
  1. XELJANZ XR [Suspect]
     Active Substance: TOFACITINIB CITRATE
     Indication: Psoriatic arthropathy
     Dosage: 11 MG, DAILY
     Route: 048
     Dates: start: 202010
  2. METHOTREXATE [Concomitant]
     Active Substance: METHOTREXATE
     Dosage: UNK

REACTIONS (18)
  - Drug ineffective [Unknown]
  - Alopecia [Unknown]
  - Depressed mood [Unknown]
  - Mood altered [Unknown]
  - COVID-19 [Unknown]
  - Arthralgia [Unknown]
  - Dry skin [Unknown]
  - Headache [Unknown]
  - Discouragement [Unknown]
  - Musculoskeletal discomfort [Unknown]
  - Pain [Unknown]
  - Loss of personal independence in daily activities [Unknown]
  - Sensitivity to weather change [Unknown]
  - Hypertension [Unknown]
  - Cough [Unknown]
  - Fatigue [Unknown]
  - Bradykinesia [Unknown]
  - Condition aggravated [Unknown]

NARRATIVE: CASE EVENT DATE: 20210801
